FAERS Safety Report 22311148 (Version 1)
Quarter: 2023Q2

REPORT INFORMATION
  Report Type: Spontaneous
  Country: US (occurrence: US)
  Receive Date: 20230511
  Receipt Date: 20230511
  Transmission Date: 20230722
  Serious: No
  Sender: FDA-Public Use
  Company Number: US-Cardinal Health 414-NPHS-AE-22-23

PATIENT
  Age: 70 Year
  Sex: Female
  Weight: 116.1 kg

DRUGS (2)
  1. KIT FOR THE PREPARATION OF TECHNETIUM TC99M SESTAMIBI [Suspect]
     Active Substance: TECHNETIUM TC-99M SESTAMIBI
     Indication: Scan myocardial perfusion
     Dosage: CARDIAC STRESS
     Route: 042
     Dates: start: 20220906, end: 20220906
  2. KIT FOR THE PREPARATION OF TECHNETIUM TC99M SESTAMIBI [Suspect]
     Active Substance: TECHNETIUM TC-99M SESTAMIBI
     Indication: Scan myocardial perfusion
     Dosage: CARDIAC REST
     Route: 065
     Dates: start: 20220907, end: 20220907

REACTIONS (4)
  - Drug ineffective [Recovered/Resolved]
  - Infusion site extravasation [Unknown]
  - Medication error [Recovered/Resolved]
  - Off label use [Recovered/Resolved]

NARRATIVE: CASE EVENT DATE: 20220906
